FAERS Safety Report 15141897 (Version 1)
Quarter: 2018Q3

REPORT INFORMATION
  Report Type: Spontaneous
  Country: US (occurrence: US)
  Receive Date: 20180713
  Receipt Date: 20180713
  Transmission Date: 20181010
  Serious: No
  Sender: FDA-Public Use
  Company Number: US-ASTELLAS-2017US033019

PATIENT
  Age: 85 Year
  Sex: Female

DRUGS (2)
  1. MYRBETRIQ [Suspect]
     Active Substance: MIRABEGRON
     Indication: HYPERTONIC BLADDER
     Dosage: UNK, UNKNOWN FREQ.
     Route: 065
     Dates: start: 20170414
  2. MYRBETRIQ [Suspect]
     Active Substance: MIRABEGRON
     Dosage: 0.5 DF, HALF EVERY OTHER DAY OR AS NEEDED.
     Route: 065

REACTIONS (6)
  - Feeling abnormal [Recovered/Resolved]
  - Drug intolerance [Unknown]
  - Inappropriate schedule of drug administration [Unknown]
  - Abdominal discomfort [Recovered/Resolved]
  - Dizziness [Recovered/Resolved]
  - Wrong technique in product usage process [Unknown]
